FAERS Safety Report 6990094-1 (Version None)
Quarter: 2010Q3

REPORT INFORMATION
  Report Type: 
  Country: None (occurrence: None)
  Receive Date: 20100916
  Receipt Date: 20100421
  Transmission Date: 20110219
  Serious: Yes (Hospitalization, Other)
  Sender: FDA-Public Use
  Company Number: DE-PFIZER INC-2009310776

PATIENT
  Sex: Female

DRUGS (4)
  1. LYRICA [Suspect]
     Indication: DEPRESSION
     Dosage: 300 MG, 1X/DAY
     Route: 048
  2. LYRICA [Interacting]
     Dosage: 100 MG, 4X/DAY
     Route: 048
  3. VENLAFAXINE HCL [Interacting]
     Indication: DEPRESSION
     Dosage: 75 MG/DAY
     Route: 048
     Dates: end: 20091207
  4. VENLAFAXINE HCL [Interacting]
     Dosage: 150 MG, UNK
     Dates: start: 20091208

REACTIONS (6)
  - DRUG INTERACTION [None]
  - FALL [None]
  - FATIGUE [None]
  - PULMONARY EMBOLISM [None]
  - THROMBOSIS [None]
  - TRAUMATIC HAEMATOMA [None]
